FAERS Safety Report 19690942 (Version 2)
Quarter: 2021Q4

REPORT INFORMATION
  Report Type: Spontaneous
  Country: US (occurrence: US)
  Receive Date: 20210812
  Receipt Date: 20211013
  Transmission Date: 20220303
  Serious: No
  Sender: FDA-Public Use
  Company Number: US-PFIZER INC-2021894871

PATIENT
  Age: 67 Year
  Sex: Male

DRUGS (1)
  1. EMCYT [Suspect]
     Active Substance: ESTRAMUSTINE PHOSPHATE SODIUM
     Dosage: 140 MG, CYCLIC (2 CAPSULES 2X A DAY FOR 4 WEEKS THEN REST FOR 2 WEEKS)
     Route: 048

REACTIONS (1)
  - Illness [Unknown]
